FAERS Safety Report 9290557 (Version 1)
Quarter: 2013Q2

REPORT INFORMATION
  Report Type: Spontaneous
  Country: US (occurrence: US)
  Receive Date: 20130514
  Receipt Date: 20130514
  Transmission Date: 20140414
  Serious: Yes (Hospitalization)
  Sender: FDA-Public Use
  Company Number: US-BRACCO-007234

PATIENT
  Age: 36 Year
  Sex: Female
  Weight: 89 kg

DRUGS (4)
  1. PROHANCE [Suspect]
     Indication: ASTHENIA
     Route: 042
     Dates: start: 20111127, end: 20111127
  2. PROHANCE [Suspect]
     Indication: ANGIOGRAM
     Route: 042
     Dates: start: 20111127, end: 20111127
  3. PROHANCE [Suspect]
     Indication: NUCLEAR MAGNETIC RESONANCE IMAGING BRAIN
     Route: 042
     Dates: start: 20111127, end: 20111127
  4. PROHANCE [Suspect]
     Indication: HYPOAESTHESIA
     Route: 042
     Dates: start: 20111127, end: 20111127

REACTIONS (1)
  - Anaphylactic reaction [Recovered/Resolved]
